FAERS Safety Report 8506669-4 (Version None)
Quarter: 2012Q3

REPORT INFORMATION
  Report Type: 
  Country: None (occurrence: None)
  Receive Date: 20120712
  Receipt Date: 20120710
  Transmission Date: 20120928
  Serious: No
  Sender: FDA-Public Use
  Company Number: US-PFIZER INC-2012166527

PATIENT
  Age: 33 Year
  Sex: Female

DRUGS (1)
  1. GEODON [Suspect]
     Dosage: UNK
     Dates: start: 20120701

REACTIONS (3)
  - INSOMNIA [None]
  - INCORRECT PRODUCT STORAGE [None]
  - POOR QUALITY DRUG ADMINISTERED [None]
